FAERS Safety Report 13149861 (Version 1)
Quarter: 2017Q1

REPORT INFORMATION
  Report Type: Spontaneous
  Country: US (occurrence: US)
  Receive Date: 20170125
  Receipt Date: 20170125
  Transmission Date: 20170428
  Serious: Yes (Other)
  Sender: FDA-Public Use
  Company Number: None

PATIENT
  Age: 59 Year
  Sex: Female
  Weight: 54.43 kg

DRUGS (1)
  1. BENZEDREX [Suspect]
     Active Substance: PROPYLHEXEDRINE
     Indication: NASAL CONGESTION
     Dates: start: 20170121, end: 20170121

REACTIONS (8)
  - Agitation [None]
  - Lethargy [None]
  - Restlessness [None]
  - Nervousness [None]
  - Feeling abnormal [None]
  - Speech disorder [None]
  - Euphoric mood [None]
  - Fatigue [None]

NARRATIVE: CASE EVENT DATE: 20170121
